FAERS Safety Report 22590247 (Version 1)
Quarter: 2023Q2

REPORT INFORMATION
  Report Type: Spontaneous
  Country: DE (occurrence: DE)
  Receive Date: 20230612
  Receipt Date: 20230612
  Transmission Date: 20230721
  Serious: Yes (Other)
  Sender: FDA-Public Use
  Company Number: DE-MYLANLABS-2023M1039793

PATIENT
  Age: 17 Year

DRUGS (8)
  1. METHOTREXATE [Suspect]
     Active Substance: METHOTREXATE
     Indication: Prophylaxis against graft versus host disease
     Dosage: UNK
     Route: 065
  2. CYCLOSPORINE [Suspect]
     Active Substance: CYCLOSPORINE
     Indication: Prophylaxis against graft versus host disease
     Dosage: UNK
     Route: 065
  3. FLUDARABINE [Suspect]
     Active Substance: FLUDARABINE PHOSPHATE
     Indication: Bone marrow conditioning regimen
     Dosage: 120 MILLIGRAM/SQ. METER
     Route: 065
  4. THYMOCYTE IMMUNE GLOBULIN NOS [Suspect]
     Active Substance: THYMOCYTE IMMUNE GLOBULIN NOS
     Indication: Immunoglobulin therapy
     Dosage: UNK, ATG-FRESENIUS
     Route: 065
  5. RITUXIMAB [Suspect]
     Active Substance: RITUXIMAB
     Indication: Immunomodulatory therapy
     Dosage: 750 MG/SQ.M, TOTAL(375 MG/SQ.M, 2X)
     Route: 065
  6. THIOTEPA [Suspect]
     Active Substance: THIOTEPA
     Indication: Bone marrow conditioning regimen
     Dosage: 10 MILLIGRAM/SQ. METER
     Route: 065
  7. ABATACEPT [Suspect]
     Active Substance: ABATACEPT
     Indication: Immunomodulatory therapy
     Dosage: 10 MILLIGRAM/KILOGRAM, BIWEEKLY
     Route: 042
  8. TREOSULFAN [Suspect]
     Active Substance: TREOSULFAN
     Indication: Bone marrow conditioning regimen
     Dosage: 42 GRAM PER SQUARE METRE
     Route: 065

REACTIONS (6)
  - Human herpesvirus 6 infection [Recovered/Resolved]
  - Candida infection [Recovered/Resolved]
  - Cytomegalovirus infection [Recovered/Resolved]
  - Parvovirus B19 infection [Recovered/Resolved]
  - Pharyngeal ulceration [Recovered/Resolved]
  - Drug ineffective [Unknown]
